FAERS Safety Report 14073908 (Version 4)
Quarter: 2019Q2

REPORT INFORMATION
  Report Type: Spontaneous
  Country: CO (occurrence: CO)
  Receive Date: 20171011
  Receipt Date: 20190507
  Transmission Date: 20190711
  Serious: Yes (Other)
  Sender: FDA-Public Use
  Company Number: CO-PFIZER INC-2016154993

PATIENT
  Age: 74 Year
  Sex: Female

DRUGS (2)
  1. XELJANZ [Suspect]
     Active Substance: TOFACITINIB CITRATE
     Indication: RHEUMATOID ARTHRITIS
     Dosage: 5 MG, 2X/DAY
     Route: 048
     Dates: start: 201511
  2. XELJANZ [Suspect]
     Active Substance: TOFACITINIB CITRATE
     Dosage: 5 MG, 2X/DAY
     Route: 048
     Dates: end: 201803

REACTIONS (10)
  - Fall [Recovering/Resolving]
  - Venous occlusion [Recovering/Resolving]
  - Cardiac disorder [Unknown]
  - Palpitations [Unknown]
  - Hypertension [Unknown]
  - Chest injury [Recovering/Resolving]
  - Intentional dose omission [Unknown]
  - Musculoskeletal chest pain [Not Recovered/Not Resolved]
  - Product dose omission [Unknown]
  - Fat embolism [Recovering/Resolving]

NARRATIVE: CASE EVENT DATE: 201601
